FAERS Safety Report 6710419-1 (Version None)
Quarter: 2010Q2

REPORT INFORMATION
  Report Type: 
  Country: None (occurrence: None)
  Receive Date: 20100504
  Receipt Date: 20100423
  Transmission Date: 20101027
  Serious: Yes (Hospitalization)
  Sender: FDA-Public Use
  Company Number: RU-WYE-H14520510

PATIENT
  Sex: Female
  Weight: 103 kg

DRUGS (2)
  1. CAPECITABINE [Suspect]
     Indication: BREAST CANCER
     Dosage: 4000 MG/M2 DAILY DAYS 1-14 PER 21 DAY CYCLE
     Route: 048
     Dates: start: 20100318, end: 20100408
  2. LAPATINIB [Suspect]
     Indication: BREAST CANCER
     Dosage: 1250 MG DAILY IN A 21 DAY CYCLE
     Route: 048
     Dates: start: 20100318, end: 20100408

REACTIONS (2)
  - ACUTE MYOCARDIAL INFARCTION [None]
  - MYOCARDIAL ISCHAEMIA [None]
